FAERS Safety Report 16190721 (Version 1)
Quarter: 2019Q2

REPORT INFORMATION
  Report Type: Spontaneous
  Country: US (occurrence: US)
  Receive Date: 20190311
  Receipt Date: 20190311
  Transmission Date: 20190711
  Serious: Yes (Death)
  Sender: FDA-Public Use
  Company Number: None

PATIENT
  Age: 65 Year
  Sex: Male
  Weight: 67.1 kg

DRUGS (2)
  1. YESCARTA [Suspect]
     Active Substance: AXICABTAGENE CILOLEUCEL
     Indication: RICHTER^S SYNDROME
     Dosage: ?          OTHER DOSE:2X1-^8 CAR T;?
     Route: 042
     Dates: start: 20190208
  2. YESCARTA [Suspect]
     Active Substance: AXICABTAGENE CILOLEUCEL
     Indication: DIFFUSE LARGE B-CELL LYMPHOMA REFRACTORY
     Dosage: ?          OTHER DOSE:2X1-^8 CAR T;?
     Route: 042
     Dates: start: 20190208

REACTIONS (8)
  - Disease progression [None]
  - Neurotoxicity [None]
  - Disseminated intravascular coagulation [None]
  - Febrile neutropenia [None]
  - Aspergillus infection [None]
  - Cerebral infarction [None]
  - Cytokine release syndrome [None]
  - Cancer pain [None]

NARRATIVE: CASE EVENT DATE: 20190225
